FAERS Safety Report 6066462-1 (Version None)
Quarter: 2009Q1

REPORT INFORMATION
  Report Type: 
  Country: None (occurrence: None)
  Receive Date: 20090205
  Receipt Date: 20090128
  Transmission Date: 20090719
  Serious: Yes (Hospitalization)
  Sender: FDA-Public Use
  Company Number: US-BIOGENIDEC-2008BI033802

PATIENT
  Age: 29 Year
  Sex: Female

DRUGS (3)
  1. TYSABRI [Suspect]
     Indication: MULTIPLE SCLEROSIS
     Route: 042
     Dates: start: 20070404, end: 20070607
  2. TYSABRI [Suspect]
     Route: 042
     Dates: start: 20080125, end: 20080602
  3. TYSABRI [Suspect]
     Route: 042
     Dates: start: 20081030

REACTIONS (7)
  - ASTHENIA [None]
  - BURNING SENSATION [None]
  - DYSPNOEA [None]
  - FALL [None]
  - MUSCLE SPASTICITY [None]
  - SYNCOPE [None]
  - VISUAL IMPAIRMENT [None]
